FAERS Safety Report 5494688-4 (Version None)
Quarter: 2007Q4

REPORT INFORMATION
  Report Type: 
  Country: None (occurrence: None)
  Receive Date: 20071024
  Receipt Date: 20071014
  Transmission Date: 20080405
  Serious: Yes (Other)
  Sender: FDA-Public Use
  Company Number: CH-ROCHE-525165

PATIENT
  Age: 73 Year
  Sex: Female

DRUGS (5)
  1. BONIVA [Suspect]
     Indication: OSTEOPOROSIS
     Dosage: FORM REPORTED AS VIAL.
     Route: 042
     Dates: start: 20070420
  2. CALCIMAGON [Concomitant]
     Indication: OSTEOPOROSIS
     Dosage: DRUG REPORTED AS CALCIMAGON D3.
     Route: 048
  3. IMODIUM [Concomitant]
     Dosage: ROUTE REPORTED AS LINGUAL
     Route: 050
  4. NORMACOL [Concomitant]
     Route: 048
  5. SUPRADYN [Concomitant]
     Route: 048

REACTIONS (1)
  - PULMONARY EMBOLISM [None]
